FAERS Safety Report 9278714 (Version 3)
Quarter: 2013Q3

REPORT INFORMATION
  Report Type: Spontaneous
  Country: BR (occurrence: BR)
  Receive Date: 20130508
  Receipt Date: 20130708
  Transmission Date: 20140515
  Serious: Yes (Death, Hospitalization, Other)
  Sender: FDA-Public Use
  Company Number: BR-BAYER-2013-021583

PATIENT
  Age: 78 Year
  Sex: Male
  Weight: 50 kg

DRUGS (4)
  1. NEXAVAR [Suspect]
     Indication: HEPATIC CANCER
     Dosage: 2 DF, BID
     Route: 048
     Dates: start: 20120228, end: 2013
  2. NEXAVAR [Suspect]
     Indication: HEPATIC CANCER
     Dosage: 1 TABLET IN THE MORNING AND 1 TABLET AT NIGHT
     Dates: start: 201205, end: 201207
  3. NEXAVAR [Suspect]
     Indication: HEPATIC CANCER
     Dosage: 2 TABLETS IN THE MORNING AND 2 TABLETS AT NIGHT
     Dates: start: 201207
  4. BARACLUDE [Concomitant]
     Indication: HEPATITIS B
     Dosage: 1 DF, QD
     Route: 048
     Dates: start: 2010

REACTIONS (13)
  - Hepatic cancer [Fatal]
  - Eating disorder [Not Recovered/Not Resolved]
  - Weight decreased [Not Recovered/Not Resolved]
  - Decreased appetite [Not Recovered/Not Resolved]
  - Burning sensation [Not Recovered/Not Resolved]
  - Dyspepsia [Not Recovered/Not Resolved]
  - Asthenia [Not Recovered/Not Resolved]
  - Nausea [Not Recovered/Not Resolved]
  - Blood pressure decreased [Not Recovered/Not Resolved]
  - Retching [None]
  - Food aversion [None]
  - Abdominal pain upper [None]
  - Suicidal ideation [None]
